FAERS Safety Report 19599889 (Version 1)
Quarter: 2021Q3

REPORT INFORMATION
  Report Type: Spontaneous
  Country: FR (occurrence: FR)
  Receive Date: 20210722
  Receipt Date: 20210722
  Transmission Date: 20211014
  Serious: Yes (Other)
  Sender: FDA-Public Use
  Company Number: FR-PFIZER INC-2021866747

PATIENT
  Age: 43 Year
  Sex: Female
  Weight: 96 kg

DRUGS (1)
  1. NEURONTIN [Suspect]
     Active Substance: GABAPENTIN
     Indication: PAIN
     Dosage: 2100 MG, 1X/DAY
     Route: 048
     Dates: start: 202105, end: 202106

REACTIONS (7)
  - Ear haemorrhage [Recovered/Resolved]
  - Off label use [Unknown]
  - Hyperphagia [Unknown]
  - Vertigo [Unknown]
  - Oedema peripheral [Unknown]
  - Suicidal ideation [Unknown]
  - Ecchymosis [Recovered/Resolved]

NARRATIVE: CASE EVENT DATE: 202105
